FAERS Safety Report 7677499-0 (Version None)
Quarter: 2011Q3

REPORT INFORMATION
  Report Type: 
  Country: None (occurrence: None)
  Receive Date: 20110811
  Receipt Date: 20110801
  Transmission Date: 20111222
  Serious: Yes (Hospitalization)
  Sender: FDA-Public Use
  Company Number: AU-JNJFOC-20110606719

PATIENT
  Sex: Male

DRUGS (43)
  1. RABEPRAZOLE SODIUM [Concomitant]
     Indication: GASTROOESOPHAGEAL REFLUX DISEASE
     Route: 048
     Dates: start: 20080617
  2. ELIGARD [Concomitant]
     Indication: PROSTATE CANCER
     Route: 058
     Dates: start: 20081203
  3. AUGMENTIN DUO FORTE [Concomitant]
     Indication: COUGH
     Route: 048
     Dates: start: 20110323
  4. SLOW-K [Concomitant]
     Indication: BLOOD POTASSIUM DECREASED
     Route: 048
     Dates: start: 20110516, end: 20110617
  5. FORMULA 33 SE [Concomitant]
     Indication: ANTIINFLAMMATORY THERAPY
     Route: 048
     Dates: start: 20020222
  6. FENTANYL [Concomitant]
     Route: 062
     Dates: start: 20110118
  7. PHOSPHATE-SANDOZ [Concomitant]
     Route: 048
     Dates: start: 20110627, end: 20110627
  8. TRIMETHOPRIM [Concomitant]
     Indication: URINARY TRACT INFECTION
     Route: 048
     Dates: start: 20110518, end: 20110525
  9. ENOXAPARIN SODIUM [Concomitant]
     Indication: THROMBOSIS
     Route: 058
     Dates: start: 20110622, end: 20110628
  10. ROXITHROMYCIN [Concomitant]
     Indication: SEPSIS
     Route: 048
     Dates: start: 20110610, end: 20110613
  11. AUGMENTIN DUO FORTE [Concomitant]
     Indication: PYREXIA
     Route: 048
     Dates: start: 20110624, end: 20110628
  12. AUGMENTIN DUO FORTE [Concomitant]
     Route: 048
     Dates: start: 20110614, end: 20110618
  13. ONDANSETRON [Concomitant]
     Indication: NAUSEA
     Route: 048
     Dates: start: 20110622, end: 20110628
  14. ACETAMINOPHEN [Concomitant]
     Indication: SEPSIS
     Route: 042
     Dates: start: 20110710, end: 20110710
  15. ABIRATERONE ACETATE [Suspect]
     Route: 048
     Dates: start: 20101201, end: 20110720
  16. OXYCODONE HCL [Concomitant]
     Indication: CANCER PAIN
     Route: 048
     Dates: start: 20081020
  17. MORPHINE HCL ELIXIR [Concomitant]
     Indication: CANCER PAIN
     Route: 048
     Dates: start: 20101210
  18. PREDNISONE [Suspect]
     Indication: PROSTATE CANCER METASTATIC
     Route: 048
     Dates: start: 20101201
  19. MOVIPREP [Concomitant]
     Indication: CONSTIPATION
     Route: 048
     Dates: start: 20101129
  20. COLOXYL WITH SENNA [Concomitant]
     Indication: CONSTIPATION
     Route: 048
     Dates: start: 20101209
  21. ROXITHROMYCIN [Concomitant]
     Indication: COUGH
     Route: 048
     Dates: start: 20110323
  22. PREDNISONE [Suspect]
     Route: 048
  23. ZOLEDRONIC ACID [Concomitant]
     Indication: BONE DISORDER
     Route: 042
     Dates: start: 20080821
  24. ACETAMINOPHEN [Concomitant]
     Indication: CANCER PAIN
     Route: 048
     Dates: start: 20090129
  25. FENTANYL [Concomitant]
     Indication: CANCER PAIN
     Route: 062
     Dates: start: 20110525, end: 20110629
  26. FENTANYL [Concomitant]
     Route: 062
     Dates: start: 20110630
  27. HYDROCORTISONE [Concomitant]
     Indication: SEPSIS
     Route: 042
     Dates: start: 20110610, end: 20110610
  28. ENOXAPARIN SODIUM [Concomitant]
     Route: 058
     Dates: start: 20110610, end: 20110613
  29. CALCIUM CARBONATE [Concomitant]
     Route: 048
     Dates: start: 20110610, end: 20110614
  30. ABIRATERONE ACETATE [Suspect]
     Indication: PROSTATE CANCER METASTATIC
     Route: 048
     Dates: start: 20081203, end: 20101130
  31. LEUPROLIDE ACETATE [Concomitant]
     Indication: PROSTATE CANCER
     Route: 065
     Dates: start: 20030101
  32. ALLOPURINOL [Concomitant]
     Indication: GOUT
     Route: 048
     Dates: start: 20070201
  33. METOCLOPRAMIDE [Concomitant]
     Indication: NAUSEA
     Route: 048
     Dates: start: 20110213
  34. CEFTRIAXONE [Concomitant]
     Route: 042
     Dates: start: 20110610, end: 20110613
  35. CALCIUM CARBONATE [Concomitant]
     Indication: PROPHYLAXIS
     Route: 048
     Dates: start: 20110628, end: 20110628
  36. LACTULOSE [Concomitant]
     Indication: CONSTIPATION PROPHYLAXIS
     Route: 048
     Dates: start: 20110626, end: 20110627
  37. CEFTRIAXONE [Concomitant]
     Indication: SEPSIS
     Route: 042
     Dates: start: 20110710, end: 20110711
  38. AZITHROMYCIN [Concomitant]
     Indication: SEPSIS
     Route: 042
     Dates: start: 20110610, end: 20110610
  39. FUROSEMIDE [Concomitant]
     Indication: PROPHYLAXIS
     Route: 042
     Dates: start: 20110611, end: 20110611
  40. NILSTAT [Concomitant]
     Route: 048
     Dates: start: 20110612, end: 20110614
  41. PHOSPHATE-SANDOZ [Concomitant]
     Indication: BLOOD PHOSPHORUS DECREASED
     Route: 048
     Dates: start: 20110516, end: 20110617
  42. NILSTAT [Concomitant]
     Indication: ANTIFUNGAL PROPHYLAXIS
     Route: 048
     Dates: start: 20110622, end: 20110628
  43. ANUSOL (BISMUTH OXIDE,ZINC OXIDE,BISMUTH SUBGALLATE) [Concomitant]
     Indication: PROPHYLAXIS
     Route: 061
     Dates: start: 20110628, end: 20110628

REACTIONS (2)
  - SEPSIS [None]
  - PYREXIA [None]
